FAERS Safety Report 8956581 (Version 1)
Quarter: 2012Q4

REPORT INFORMATION
  Report Type: 
  Country: US (occurrence: US)
  Receive Date: 20121210
  Receipt Date: 20121210
  Transmission Date: 20130627
  Serious: Yes (Life-Threatening)
  Sender: FDA-Public Use
  Company Number: US-ASTRAZENECA-2012SE91814

PATIENT
  Age: 454 Month
  Sex: Female
  Weight: 63.5 kg

DRUGS (6)
  1. SEROQUEL XR [Suspect]
     Indication: BIPOLAR DISORDER
     Route: 048
     Dates: start: 2011
  2. SEROQUEL XR [Suspect]
     Indication: DEPRESSION
     Route: 048
     Dates: start: 2011
  3. ABILIFY [Concomitant]
     Indication: DEPRESSION
     Route: 048
  4. PROZAC [Concomitant]
     Indication: DEPRESSION
     Route: 048
  5. KLONOPIN [Concomitant]
     Indication: DEPRESSION
     Route: 048
  6. AMBIEN [Concomitant]
     Indication: SLEEP DISORDER
     Route: 048

REACTIONS (2)
  - Overdose [Recovered/Resolved]
  - Suicide attempt [Recovered/Resolved]
